FAERS Safety Report 14557136 (Version 6)
Quarter: 2018Q2

REPORT INFORMATION
  Report Type: Spontaneous
  Country: US (occurrence: US)
  Receive Date: 20180221
  Receipt Date: 20180426
  Transmission Date: 20180711
  Serious: Yes (Hospitalization)
  Sender: FDA-Public Use
  Company Number: US-UNITED THERAPEUTICS-UNT-2018-002197

PATIENT
  Age: 52 Year
  Sex: Female
  Weight: 95.24 kg

DRUGS (1)
  1. REMODULIN [Suspect]
     Active Substance: TREPROSTINIL
     Indication: PULMONARY ARTERIAL HYPERTENSION
     Dosage: 0.015 ?G/KG, CONTINUING
     Route: 041
     Dates: start: 20170228

REACTIONS (6)
  - Injection site pain [Recovered/Resolved]
  - Device dislocation [Unknown]
  - Injection site extravasation [Recovered/Resolved]
  - Injection site swelling [Recovered/Resolved]
  - Device breakage [Recovered/Resolved]
  - Muscle spasms [Recovered/Resolved]

NARRATIVE: CASE EVENT DATE: 20180210
